FAERS Safety Report 5790179-1 (Version None)
Quarter: 2008Q2

REPORT INFORMATION
  Report Type: 
  Country: None (occurrence: None)
  Receive Date: 20080626
  Receipt Date: 20080320
  Transmission Date: 20081010
  Serious: No
  Sender: FDA-Public Use
  Company Number: A0703496A

PATIENT
  Age: 2 Year
  Sex: Male

DRUGS (1)
  1. ALLI [Suspect]
     Indication: ACCIDENTAL EXPOSURE
     Route: 048
     Dates: start: 20080114, end: 20080114

REACTIONS (4)
  - ACCIDENTAL EXPOSURE [None]
  - FREQUENT BOWEL MOVEMENTS [None]
  - INSOMNIA [None]
  - PHARMACEUTICAL PRODUCT COMPLAINT [None]
